FAERS Safety Report 6280749-9 (Version None)
Quarter: 2009Q3

REPORT INFORMATION
  Report Type: 
  Country: None (occurrence: None)
  Receive Date: 20090724
  Receipt Date: 20090105
  Transmission Date: 20100115
  Serious: No
  Sender: FDA-Public Use
  Company Number: A0762345A

PATIENT
  Age: 78 Year
  Sex: Male

DRUGS (6)
  1. AVANDIA [Suspect]
     Dosage: 4MG TWICE PER DAY
     Route: 048
  2. METFORMIN HCL [Concomitant]
  3. GLYBURIDE [Concomitant]
  4. SYNTHROID [Concomitant]
  5. ASPIRIN [Concomitant]
  6. MULTI-VITAMIN [Concomitant]

REACTIONS (1)
  - BLOOD GLUCOSE INCREASED [None]
